FAERS Safety Report 19878986 (Version 2)
Quarter: 2022Q1

REPORT INFORMATION
  Report Type: Report from Study
  Country: CA (occurrence: CA)
  Receive Date: 20210924
  Receipt Date: 20220209
  Transmission Date: 20220423
  Serious: Yes (Hospitalization, Other)
  Sender: FDA-Public Use
  Company Number: CA-ABBVIE-21K-028-4090711-00

PATIENT
  Age: 40 Year
  Sex: Female

DRUGS (2)
  1. HUMIRA [Suspect]
     Active Substance: ADALIMUMAB
     Indication: Crohn^s disease
     Route: 058
     Dates: start: 20150501, end: 20210808
  2. HUMIRA [Suspect]
     Active Substance: ADALIMUMAB
     Route: 058
     Dates: start: 20210910

REACTIONS (7)
  - Platelet disorder [Recovering/Resolving]
  - Immune thrombocytopenia [Unknown]
  - Faeces discoloured [Unknown]
  - Haematochezia [Unknown]
  - Therapeutic response shortened [Unknown]
  - Diarrhoea [Unknown]
  - Unevaluable event [Unknown]

NARRATIVE: CASE EVENT DATE: 20210801
